FAERS Safety Report 10553109 (Version 1)
Quarter: 2014Q4

REPORT INFORMATION
  Report Type: Spontaneous
  Country: US (occurrence: US)
  Receive Date: 20141030
  Receipt Date: 20141030
  Transmission Date: 20150529
  Serious: Yes (Hospitalization)
  Sender: FDA-Public Use
  Company Number: PHHY2014US138104

PATIENT
  Age: 48 Year
  Sex: Male

DRUGS (5)
  1. DIVALPROEX SODIUM. [Suspect]
     Active Substance: DIVALPROEX SODIUM
     Indication: SCHIZOAFFECTIVE DISORDER
     Route: 065
  2. BENZTROPINE [Concomitant]
     Active Substance: BENZTROPINE
     Indication: SCHIZOAFFECTIVE DISORDER
     Route: 065
  3. OLANZAPINE. [Suspect]
     Active Substance: OLANZAPINE
     Indication: SCHIZOAFFECTIVE DISORDER
     Route: 065
  4. RISPERIDONE. [Suspect]
     Active Substance: RISPERIDONE
     Indication: SCHIZOAFFECTIVE DISORDER
     Route: 065
  5. CLONAZEPAM. [Suspect]
     Active Substance: CLONAZEPAM
     Indication: SCHIZOAFFECTIVE DISORDER
     Route: 065

REACTIONS (20)
  - Agitation [Unknown]
  - Muscle contracture [Unknown]
  - Muscle rigidity [Recovering/Resolving]
  - Breath sounds abnormal [Unknown]
  - Hyperthermia [Unknown]
  - Bandaemia [Unknown]
  - Myoglobinuria [Unknown]
  - Transaminases increased [Unknown]
  - Neuroleptic malignant syndrome [Unknown]
  - Tremor [Unknown]
  - Gastrointestinal sounds abnormal [Unknown]
  - Rhabdomyolysis [Unknown]
  - Emotional distress [Unknown]
  - Hyperreflexia [Unknown]
  - Abdominal rigidity [Unknown]
  - Acute kidney injury [Unknown]
  - Posture abnormal [Unknown]
  - Hypertonia [Unknown]
  - Tachypnoea [Unknown]
  - Thrombocytopenia [Unknown]
